FAERS Safety Report 4610827-9 (Version None)
Quarter: 2005Q2

REPORT INFORMATION
  Report Type: 
  Country: None (occurrence: None)
  Receive Date: 20050228
  Receipt Date: 20040203
  Transmission Date: 20051028
  Serious: Yes (Other)
  Sender: FDA-Public Use
  Company Number: 9039997-2004-00032

PATIENT
  Age: 44 Year
  Sex: Female

DRUGS (1)
  1. LEVULAN KERASTICK FOR TOPICAL SOLUTION, 20% [Suspect]
     Indication: PIGMENTATION DISORDER
     Dosage: 20 %, ONCE, TOPICAL
     Route: 061
     Dates: start: 20040130

REACTIONS (4)
  - APPLICATION SITE DISCOLOURATION [None]
  - APPLICATION SITE ERYTHEMA [None]
  - APPLICATION SITE IRRITATION [None]
  - SCAB [None]
